FAERS Safety Report 12240507 (Version 1)
Quarter: 2016Q2

REPORT INFORMATION
  Report Type: Other
  Country: US (occurrence: US)
  Receive Date: 20160405
  Receipt Date: 20160405
  Transmission Date: 20160815
  Serious: Yes (Other)
  Sender: FDA-Public Use
  Company Number: US-PURDUE-DEU-2016-0017838

PATIENT
  Age: 53 Year
  Sex: Male

DRUGS (5)
  1. LIDOCAINE W/EPINEPHRIN [Concomitant]
     Dosage: 4 ML, SINGLE (1.5%)
     Route: 008
  2. LACTATED RINGERS [Concomitant]
     Active Substance: CALCIUM CHLORIDE\POTASSIUM CHLORIDE\SODIUM CHLORIDE\SODIUM LACTATE
  3. NON-PMN HYDROMORPHONE HCL [Suspect]
     Active Substance: HYDROMORPHONE HYDROCHLORIDE
     Indication: PAIN
     Dosage: 25 MCG/ML, UNK
     Route: 008
  4. NON-PMN HYDROMORPHONE HCL [Suspect]
     Active Substance: HYDROMORPHONE HYDROCHLORIDE
     Dosage: UNK
     Route: 065
  5. BUPIVACAINE. [Suspect]
     Active Substance: BUPIVACAINE
     Indication: PRODUCT USED FOR UNKNOWN INDICATION
     Dosage: 0.1 %, UNK
     Route: 008

REACTIONS (1)
  - Spinal cord disorder [Recovering/Resolving]
